FAERS Safety Report 25852129 (Version 1)
Quarter: 2025Q3

REPORT INFORMATION
  Report Type: Report from Study
  Country: US (occurrence: US)
  Receive Date: 20250926
  Receipt Date: 20250926
  Transmission Date: 20251021
  Serious: Yes (Hospitalization)
  Sender: TRAVERE THERAPEUTICS
  Company Number: US-TRAVERE-2025TVT01687

PATIENT
  Age: 71 Year
  Sex: Male
  Weight: 81.65 kg

DRUGS (7)
  1. FILSPARI [Suspect]
     Active Substance: SPARSENTAN
     Indication: IgA nephropathy
     Route: 048
     Dates: start: 20240817
  2. WARFARIN [Concomitant]
     Active Substance: WARFARIN
  3. ALLOPURINOL [Concomitant]
     Active Substance: ALLOPURINOL
  4. PRAVASTATIN [Concomitant]
     Active Substance: PRAVASTATIN
  5. TRAMADOL [Concomitant]
     Active Substance: TRAMADOL
  6. POTASSIUM CHLORIDE [Concomitant]
     Active Substance: POTASSIUM CHLORIDE
  7. FUROSEMIDE [Concomitant]
     Active Substance: FUROSEMIDE

REACTIONS (1)
  - Localised infection [Recovering/Resolving]

NARRATIVE: CASE EVENT DATE: 20250901
